FAERS Safety Report 6279026-1 (Version None)
Quarter: 2009Q3

REPORT INFORMATION
  Report Type: 
  Country: None (occurrence: None)
  Receive Date: 20090723
  Receipt Date: 20090710
  Transmission Date: 20100115
  Serious: Yes (Other)
  Sender: FDA-Public Use
  Company Number: HU-ELI_LILLY_AND_COMPANY-HU200903002374

PATIENT
  Age: 59 Year
  Sex: Female
  Weight: 52 kg

DRUGS (3)
  1. GEMZAR [Suspect]
     Indication: METASTATIC SQUAMOUS CELL CARCINOMA
     Dosage: 1800 MG, OTHER
     Route: 042
     Dates: start: 20090120, end: 20090128
  2. PENTOXIFYLLINE [Concomitant]
     Dosage: UNK, UNKNOWN
     Route: 065
  3. CARBOPLATIN [Concomitant]
     Indication: METASTATIC SQUAMOUS CELL CARCINOMA
     Dosage: UNK, UNKNOWN
     Route: 065
     Dates: start: 20090120

REACTIONS (6)
  - HAEMOGLOBIN DECREASED [None]
  - LYMPHOCYTE COUNT DECREASED [None]
  - PLATELET COUNT INCREASED [None]
  - SKIN REACTION [None]
  - URTICARIA [None]
  - WHITE BLOOD CELL COUNT DECREASED [None]
